FAERS Safety Report 23317116 (Version 1)
Quarter: 2023Q4

REPORT INFORMATION
  Report Type: Spontaneous
  Country: US (occurrence: None)
  Receive Date: 20231219
  Receipt Date: 20231219
  Transmission Date: 20240109
  Serious: No
  Sender: FDA-Public Use
  Company Number: US-ROCHE-3360056

PATIENT
  Age: 8 Year
  Sex: Male
  Weight: 28.602 kg

DRUGS (1)
  1. HEMLIBRA [Suspect]
     Active Substance: EMICIZUMAB-KXWH
     Indication: Factor VIII deficiency
     Dosage: INJECT 0.29ML SUBCUTAN EOUSLY WEEKLY
     Route: 058

REACTIONS (4)
  - Eye haemorrhage [Unknown]
  - Haemorrhage [Recovered/Resolved]
  - Peripheral swelling [Unknown]
  - Eye swelling [Unknown]

NARRATIVE: CASE EVENT DATE: 20230501
